FAERS Safety Report 17614406 (Version 1)
Quarter: 2020Q2

REPORT INFORMATION
  Report Type: Spontaneous
  Country: ES (occurrence: ES)
  Receive Date: 20200402
  Receipt Date: 20200402
  Transmission Date: 20200713
  Serious: Yes (Life-Threatening, Hospitalization)
  Sender: FDA-Public Use
  Company Number: ES-TEVA-2020-ES-1215799

PATIENT
  Age: 79 Year
  Sex: Female

DRUGS (4)
  1. CAPECITABINA (1224A) [Suspect]
     Active Substance: CAPECITABINE
     Indication: COLORECTAL ADENOCARCINOMA
     Dosage: 1000 MG / M2 DUR 14 DAYS-CYCLE1
     Route: 048
     Dates: start: 20190604, end: 20190617
  2. ?CIDO F?LICO 5 MG 28 COMPRIMIDOS [Concomitant]
     Indication: ANAEMIA
     Dosage: 5 MG
     Route: 048
     Dates: start: 20190220
  3. ORFIDAL 1 MG COMPRIMIDOS, 50 COMPRIMIDOS [Concomitant]
     Active Substance: LORAZEPAM
     Indication: ANXIETY
     Dosage: 1 MG
     Route: 048
     Dates: start: 20100618
  4. LOBIVON 5 MG COMPRIMIDOS, 28 COMPRIMIDOS [Concomitant]
     Indication: ATRIAL FIBRILLATION
     Dosage: 10 MG
     Route: 048
     Dates: start: 20101118

REACTIONS (1)
  - Enteritis [Recovered/Resolved]

NARRATIVE: CASE EVENT DATE: 20190702
